FAERS Safety Report 20621925 (Version 2)
Quarter: 2025Q2

REPORT INFORMATION
  Report Type: Spontaneous
  Country: FR (occurrence: FR)
  Receive Date: 20220322
  Receipt Date: 20250616
  Transmission Date: 20250717
  Serious: Yes (Hospitalization)
  Sender: PFIZER
  Company Number: None

PATIENT
  Age: 54 Year
  Sex: Male
  Weight: 90 kg

DRUGS (2)
  1. XALKORI [Suspect]
     Active Substance: CRIZOTINIB
     Indication: Bronchial carcinoma
     Dosage: 500 MG, 1X/DAY
     Route: 048
     Dates: start: 20211115, end: 20211217
  2. METOCLOPRAMIDE [Suspect]
     Active Substance: METOCLOPRAMIDE
     Indication: Nausea
     Dosage: 30 MG, 1X/DAY
     Route: 048
     Dates: start: 20211115, end: 20211217

REACTIONS (5)
  - Hepatic cytolysis [Recovering/Resolving]
  - Skin reaction [Recovering/Resolving]
  - Asthenia [Unknown]
  - Hepatic steatosis [Unknown]
  - Splenomegaly [Unknown]

NARRATIVE: CASE EVENT DATE: 20211126
